FAERS Safety Report 16821524 (Version 1)
Quarter: 2019Q3

REPORT INFORMATION
  Report Type: Spontaneous
  Country: DK (occurrence: DK)
  Receive Date: 20190918
  Receipt Date: 20190918
  Transmission Date: 20191005
  Serious: Yes (Other)
  Sender: FDA-Public Use
  Company Number: DK-PFIZER INC-2019394520

PATIENT
  Age: 63 Year
  Sex: Male

DRUGS (5)
  1. DOXORUBICIN HCL [Suspect]
     Active Substance: DOXORUBICIN HYDROCHLORIDE
     Indication: FOLLICLE CENTRE LYMPHOMA, FOLLICULAR GRADE I, II, III
     Dosage: 110 MG, EVERY 3 WEEKS
     Route: 042
     Dates: start: 20170830, end: 20171124
  2. ONCOVIN [Suspect]
     Active Substance: VINCRISTINE SULFATE
     Indication: FOLLICLE CENTRE LYMPHOMA, FOLLICULAR GRADE I, II, III
     Dosage: 2 MG, EVERY 3 WEEKS
     Route: 042
     Dates: start: 20170830, end: 20171124
  3. PREDNISOLONE. [Suspect]
     Active Substance: PREDNISOLONE
     Indication: FOLLICLE CENTRE LYMPHOMA, FOLLICULAR GRADE I, II, III
     Dosage: 100 MG, ONCE A DAY
     Route: 048
     Dates: start: 20170830, end: 20171124
  4. SENDOXAN [Suspect]
     Active Substance: CYCLOPHOSPHAMIDE
     Indication: FOLLICLE CENTRE LYMPHOMA, FOLLICULAR GRADE I, II, III
     Dosage: 1600 MG, EVERY 3 WEEKS
     Route: 042
     Dates: start: 20170830, end: 20171124
  5. MABTHERA [Suspect]
     Active Substance: RITUXIMAB
     Indication: FOLLICLE CENTRE LYMPHOMA, FOLLICULAR GRADE I, II, III
     Dosage: 11.7 ML, EVERY 3 WEEKS
     Route: 058
     Dates: start: 20170830, end: 20170920

REACTIONS (10)
  - Facial paresis [Not Recovered/Not Resolved]
  - Balance disorder [Not Recovered/Not Resolved]
  - Herpes virus infection [Recovered/Resolved with Sequelae]
  - Fatigue [Not Recovered/Not Resolved]
  - Hypoacusis [Not Recovered/Not Resolved]
  - Tinnitus [Not Recovered/Not Resolved]
  - Speech disorder [Not Recovered/Not Resolved]
  - Photosensitivity reaction [Unknown]
  - Weight decreased [Not Recovered/Not Resolved]
  - Hypogeusia [Not Recovered/Not Resolved]

NARRATIVE: CASE EVENT DATE: 201712
